FAERS Safety Report 5944519-0 (Version None)
Quarter: 2008Q4

REPORT INFORMATION
  Report Type: 
  Country: None (occurrence: None)
  Receive Date: 20081107
  Receipt Date: 20081029
  Transmission Date: 20090506
  Serious: Yes (Death, Other)
  Sender: FDA-Public Use
  Company Number: US-AVENTIS-200817306US

PATIENT
  Sex: Male

DRUGS (1)
  1. TAXOTERE [Suspect]
     Dosage: DOSE: UNK

REACTIONS (2)
  - LUNG INFILTRATION [None]
  - PULMONARY FIBROSIS [None]
